FAERS Safety Report 5197860-6 (Version None)
Quarter: 2006Q4

REPORT INFORMATION
  Report Type: 
  Country: None (occurrence: None)
  Receive Date: 20061228
  Receipt Date: 20061220
  Transmission Date: 20070319
  Serious: Yes (Disabling)
  Sender: FDA-Public Use
  Company Number: 232655

PATIENT
  Age: 59 Year
  Sex: Female

DRUGS (1)
  1. RANIBIZUMAB(RANIBIZUMAB) PWDR + SOLVENT, INJECTION SOLN [Suspect]
     Indication: MACULAR DEGENERATION
     Dosage: INTRAVITREAL
     Dates: start: 20060223, end: 20060223

REACTIONS (3)
  - UVEITIS [None]
  - VISUAL ACUITY REDUCED [None]
  - VITREOUS DISORDER [None]
